FAERS Safety Report 7996880-3 (Version None)
Quarter: 2011Q4

REPORT INFORMATION
  Report Type: 
  Country: None (occurrence: None)
  Receive Date: 20111221
  Receipt Date: 20111209
  Transmission Date: 20120403
  Serious: Yes (Other)
  Sender: FDA-Public Use
  Company Number: AU-BRISTOL-MYERS SQUIBB COMPANY-16283418

PATIENT
  Sex: Female

DRUGS (1)
  1. AVAPRO [Suspect]

REACTIONS (1)
  - MOTOR NEURONE DISEASE [None]
